FAERS Safety Report 8097969-3 (Version None)
Quarter: 2012Q1

REPORT INFORMATION
  Report Type: 
  Country: None (occurrence: None)
  Receive Date: 20120128
  Receipt Date: 20110816
  Transmission Date: 20120608
  Serious: No
  Sender: FDA-Public Use
  Company Number: US-ABBOTT-11P-163-0846736-00

PATIENT
  Sex: Male
  Weight: 90.8 kg

DRUGS (8)
  1. HUMIRA [Suspect]
     Indication: PSORIATIC ARTHROPATHY
     Dates: start: 20091001
  2. ATENOLOL [Concomitant]
     Indication: HYPERTENSION
  3. FISH OIL [Concomitant]
     Indication: MEDICAL DIET
  4. ATENOLOL [Concomitant]
     Indication: HEART RATE IRREGULAR
  5. SIMVASTA [Concomitant]
     Indication: BLOOD CHOLESTEROL INCREASED
  6. HUMIRA [Suspect]
  7. HYDROCHLOROTHIAZIDE [Concomitant]
     Indication: HYPERTENSION
  8. VITAMIN TAB [Concomitant]
     Indication: VITAMIN SUPPLEMENTATION

REACTIONS (5)
  - SINUS CONGESTION [None]
  - INCREASED VISCOSITY OF BRONCHIAL SECRETION [None]
  - SINUSITIS [None]
  - SPUTUM RETENTION [None]
  - RESPIRATORY TRACT CONGESTION [None]
